APPROVED DRUG PRODUCT: CLINIMIX 8/14 SULFITE FREE IN DEXTROSE 14% IN PLASTIC CONTAINER
Active Ingredient: AMINO ACIDS; DEXTROSE
Strength: 8%;14GM/100ML
Dosage Form/Route: INJECTABLE;INJECTION
Application: N020734 | Product #019
Applicant: BAXTER HEALTHCARE CORP
Approved: Apr 13, 2021 | RLD: No | RS: No | Type: RX